FAERS Safety Report 8813610 (Version 1)
Quarter: 2012Q4

REPORT INFORMATION
  Report Type: 
  Country: GB (occurrence: GB)
  Receive Date: 20120927
  Receipt Date: 20120927
  Transmission Date: 20130627
  Serious: Yes (Other)
  Sender: FDA-Public Use
  Company Number: GB-UCBSA-067483

PATIENT
  Age: 56 Year
  Sex: Male
  Weight: 88.9 kg

DRUGS (5)
  1. LACOSAMIDE [Suspect]
     Indication: TEMPORAL LOBE EPILEPSY
     Dosage: UNKNOWN
     Route: 048
     Dates: start: 2011, end: 2012
  2. ASPIRIN [Concomitant]
     Dosage: UNKNOWN
  3. EPILIM [Concomitant]
     Dosage: UNKNOWN
  4. FLECAINIDE [Concomitant]
     Dosage: UNKNOWN
  5. TEGRETOL [Concomitant]
     Dosage: UNKNOWN

REACTIONS (1)
  - Atrial flutter [Recovered/Resolved]
